FAERS Safety Report 5588556-7 (Version None)
Quarter: 2008Q1

REPORT INFORMATION
  Report Type: 
  Country: None (occurrence: None)
  Receive Date: 20080111
  Receipt Date: 20071228
  Transmission Date: 20080703
  Serious: Yes (Other)
  Sender: FDA-Public Use
  Company Number: SK-PFIZER INC-2007100718

PATIENT
  Sex: Male

DRUGS (2)
  1. MEDROL [Suspect]
     Indication: ASTHMA
  2. MEDROL [Suspect]
     Indication: RASH

REACTIONS (3)
  - ALTERED STATE OF CONSCIOUSNESS [None]
  - DISSOCIATION [None]
  - PANIC DISORDER [None]
